FAERS Safety Report 5257464-3 (Version None)
Quarter: 2007Q1

REPORT INFORMATION
  Report Type: 
  Country: None (occurrence: None)
  Receive Date: 20070307
  Receipt Date: 20060918
  Transmission Date: 20070707
  Serious: No
  Sender: FDA-Public Use
  Company Number: US-GLAXOSMITHKLINE-A0616141A

PATIENT
  Age: 68 Year
  Sex: Male
  Weight: 90.5 kg

DRUGS (3)
  1. REQUIP [Suspect]
     Indication: RESTLESS LEGS SYNDROME
     Route: 048
  2. ASPIRIN [Concomitant]
     Dosage: 81MG PER DAY
  3. MULTI-VITAMIN [Concomitant]

REACTIONS (3)
  - DYSPEPSIA [None]
  - GASTRITIS [None]
  - NAUSEA [None]
